FAERS Safety Report 6834338-5 (Version None)
Quarter: 2010Q3

REPORT INFORMATION
  Report Type: 
  Country: None (occurrence: None)
  Receive Date: 20100712
  Receipt Date: 20070411
  Transmission Date: 20110219
  Serious: No
  Sender: FDA-Public Use
  Company Number: US-PFIZER INC-2007030342

PATIENT
  Sex: Female
  Weight: 115.67 kg

DRUGS (11)
  1. CHANTIX [Suspect]
     Indication: SMOKING CESSATION THERAPY
     Route: 048
     Dates: start: 20070301, end: 20070401
  2. METFORMIN HCL [Concomitant]
  3. ALBUTEROL [Concomitant]
     Route: 055
  4. SPIRIVA [Concomitant]
     Route: 055
  5. QVAR 40 [Concomitant]
     Route: 055
  6. INSULINS AND ANALOGUES [Concomitant]
  7. METHADONE HCL [Concomitant]
  8. VICODIN [Concomitant]
  9. ACIPHEX [Concomitant]
  10. ALTACE [Concomitant]
  11. MONTELUKAST SODIUM [Concomitant]

REACTIONS (1)
  - HEART RATE INCREASED [None]
